FAERS Safety Report 17998170 (Version 3)
Quarter: 2020Q3

REPORT INFORMATION
  Report Type: Spontaneous
  Country: CN (occurrence: CN)
  Receive Date: 20200709
  Receipt Date: 20200724
  Transmission Date: 20201103
  Serious: Yes (Other)
  Sender: FDA-Public Use
  Company Number: CN-ASTRAZENECA-2020SE85335

PATIENT
  Age: 599 Month
  Sex: Male
  Weight: 70 kg

DRUGS (9)
  1. BRILINTA [Suspect]
     Active Substance: TICAGRELOR
     Indication: MYOCARDIAL INFARCTION
     Dosage: DAILY
     Route: 048
  2. ASPIRIN. [Concomitant]
     Active Substance: ASPIRIN
     Indication: ANTICOAGULANT THERAPY
     Dosage: 100 MG, ONCE PER DAY, 1 TABLET EACH TIME (MEDICATION AT NIGHT)
     Route: 048
     Dates: start: 201411
  3. BRILINTA [Suspect]
     Active Substance: TICAGRELOR
     Indication: MYOCARDIAL INFARCTION
     Dosage: 90 MG, 1 TABLET AT 9 AN OR 10 AM, 1 TABLET AT NIGHT BEFORE SLEEP
     Route: 048
     Dates: start: 20200523
  4. ASPIRIN. [Concomitant]
     Active Substance: ASPIRIN
     Indication: MYOCARDIAL INFARCTION
     Dosage: 100 MG, ONCE PER DAY, 1 TABLET EACH TIME (MEDICATION AT NIGHT)
     Route: 048
     Dates: start: 201411
  5. PLAVIX [Concomitant]
     Active Substance: CLOPIDOGREL BISULFATE
     Indication: MYOCARDIAL INFARCTION
  6. BRILINTA [Suspect]
     Active Substance: TICAGRELOR
     Indication: ANTICOAGULANT THERAPY
     Dosage: 90 MG, 1 TABLET AT 9 AN OR 10 AM, 1 TABLET AT NIGHT BEFORE SLEEP
     Route: 048
     Dates: start: 20200523
  7. LIPITOR [Concomitant]
     Active Substance: ATORVASTATIN CALCIUM
     Indication: CARDIAC DISORDER
     Dosage: ONCE PER DAY, 1 TABLET EACH TIME
     Route: 048
     Dates: start: 201411
  8. BRILINTA [Suspect]
     Active Substance: TICAGRELOR
     Indication: ANTICOAGULANT THERAPY
     Dosage: DAILY
     Route: 048
  9. LIPITOR [Concomitant]
     Active Substance: ATORVASTATIN CALCIUM
     Indication: MYOCARDIAL INFARCTION
     Dosage: ONCE PER DAY, 1 TABLET EACH TIME
     Route: 048
     Dates: start: 201411

REACTIONS (3)
  - Product dose omission issue [Recovered/Resolved]
  - Contusion [Recovered/Resolved]
  - Haemorrhage subcutaneous [Recovered/Resolved]

NARRATIVE: CASE EVENT DATE: 202005
